FAERS Safety Report 17255123 (Version 2)
Quarter: 2025Q2

REPORT INFORMATION
  Report Type: Spontaneous
  Country: ES (occurrence: ES)
  Receive Date: 20200109
  Receipt Date: 20250620
  Transmission Date: 20250717
  Serious: Yes (Other)
  Sender: AUROBINDO
  Company Number: ES-SUN PHARMACEUTICAL INDUSTRIES LTD-2019RR-232065

PATIENT
  Sex: Female
  Weight: 16 kg

DRUGS (4)
  1. LEVETIRACETAM [Interacting]
     Active Substance: LEVETIRACETAM
     Indication: Epilepsy
     Dosage: 20 MILLIGRAM/KILOGRAM, ONCE A DAY (IN TWO DOSES)
     Route: 048
  2. DESMOPRESSIN [Interacting]
     Active Substance: DESMOPRESSIN
     Indication: Urine output increased
     Dosage: 5 MICROGRAM, TWO TIMES A DAY
     Route: 045
  3. HYDROCORTISONE [Concomitant]
     Active Substance: HYDROCORTISONE
     Indication: Product used for unknown indication
     Dosage: 2.5 MILLIGRAM, 3 TIMES A DAY
     Route: 048
  4. LEVOTHYROXINE [Concomitant]
     Active Substance: LEVOTHYROXINE
     Indication: Product used for unknown indication
     Route: 048

REACTIONS (2)
  - Drug interaction [Unknown]
  - Drug ineffective [Unknown]
